FAERS Safety Report 8590515-7 (Version None)
Quarter: 2012Q3

REPORT INFORMATION
  Report Type: 
  Country: None (occurrence: None)
  Receive Date: 20120813
  Receipt Date: 20120808
  Transmission Date: 20120928
  Serious: Yes (Other)
  Sender: FDA-Public Use
  Company Number: US-VERTEX PHARMACEUTICALS INC.-AE-2012-011857

PATIENT
  Sex: Male

DRUGS (3)
  1. INCIVEK [Suspect]
     Indication: HEPATITIS C
     Route: 048
     Dates: start: 20120504, end: 20120727
  2. PEGASYS [Concomitant]
     Indication: HEPATITIS C
     Dates: start: 20120504
  3. RIBAVIRIN [Concomitant]
     Indication: HEPATITIS C
     Dates: start: 20120504

REACTIONS (4)
  - WHITE BLOOD CELL COUNT DECREASED [None]
  - DISTURBANCE IN ATTENTION [None]
  - RASH [None]
  - HAEMORRHOIDAL HAEMORRHAGE [None]
